FAERS Safety Report 23456513 (Version 2)
Quarter: 2024Q1

REPORT INFORMATION
  Report Type: Spontaneous
  Country: US (occurrence: US)
  Receive Date: 20240130
  Receipt Date: 20240223
  Transmission Date: 20240410
  Serious: No
  Sender: FDA-Public Use
  Company Number: US-Vifor (International) Inc.-VIT-2024-00504

PATIENT
  Age: 90 Year
  Sex: Female
  Weight: 76.5 kg

DRUGS (4)
  1. MIRCERA [Suspect]
     Active Substance: METHOXY POLYETHYLENE GLYCOL-EPOETIN BETA
     Indication: Anaemia
     Dosage: DOSE NUMBER: 1 AND DOSE CATEGORY: DOSE 1
     Route: 040
     Dates: start: 20231117, end: 20231117
  2. VENOFER [Suspect]
     Active Substance: IRON SUCROSE
     Indication: Product used for unknown indication
     Route: 042
     Dates: start: 20231025
  3. CALCITRIOL [Concomitant]
     Active Substance: CALCITRIOL
     Indication: Hyperparathyroidism secondary
     Dosage: 0.25 UNIT UNKNOWN
     Route: 048
     Dates: start: 20230915
  4. HEPARIN [Concomitant]
     Active Substance: HEPARIN SODIUM
     Indication: End stage renal disease
     Route: 040
     Dates: start: 20231101

REACTIONS (3)
  - Drug hypersensitivity [Recovered/Resolved]
  - Feeling hot [Recovered/Resolved]
  - Hyperhidrosis [Recovered/Resolved]

NARRATIVE: CASE EVENT DATE: 20231117
